FAERS Safety Report 8674988 (Version 3)
Quarter: 2012Q4

REPORT INFORMATION
  Report Type: 
  Country: DE (occurrence: DE)
  Receive Date: 20120720
  Receipt Date: 20121029
  Transmission Date: 20130627
  Serious: Yes (Other)
  Sender: FDA-Public Use
  Company Number: DE-BRISTOL-MYERS SQUIBB COMPANY-16772196

PATIENT
  Age: 42 Year
  Sex: Male
  Weight: 67 kg

DRUGS (3)
  1. ATAZANAVIR [Suspect]
     Indication: HIV INFECTION
     Dosage: Tablets
     Route: 048
     Dates: start: 201106, end: 201205
  2. RITONAVIR [Suspect]
     Indication: HIV INFECTION
     Dosage: Tablets
     Route: 048
     Dates: start: 201106
  3. EMTRICITABINE [Suspect]
     Indication: HIV INFECTION
     Route: 048
     Dates: start: 201106

REACTIONS (4)
  - Hyperbilirubinaemia [Recovered/Resolved]
  - Gamma-glutamyltransferase increased [Recovered/Resolved]
  - Bilirubinuria [Recovered/Resolved]
  - Flank pain [Recovered/Resolved]
